FAERS Safety Report 7068102-1 (Version None)
Quarter: 2010Q4

REPORT INFORMATION
  Report Type: 
  Country: None (occurrence: None)
  Receive Date: 20101028
  Receipt Date: 20101015
  Transmission Date: 20110411
  Serious: Yes (Hospitalization, Other)
  Sender: FDA-Public Use
  Company Number: PHHY2010JP64382

PATIENT
  Sex: Male
  Weight: 74 kg

DRUGS (5)
  1. VOLTAREN [Suspect]
     Indication: NASOPHARYNGITIS
     Dosage: PRN
     Route: 048
     Dates: start: 20100924, end: 20100924
  2. TALION [Suspect]
     Dosage: PRN
     Route: 048
     Dates: start: 20100924, end: 20100924
  3. MEIACT [Concomitant]
     Indication: NASOPHARYNGITIS
     Dosage: UNK
     Route: 048
     Dates: start: 20100923, end: 20100924
  4. CEFZON [Concomitant]
     Indication: NASOPHARYNGITIS
     Dosage: UNK
     Route: 048
     Dates: start: 20100923, end: 20100924
  5. LOPEMIN [Concomitant]
     Indication: NASOPHARYNGITIS
     Dosage: UNK
     Route: 048
     Dates: start: 20100923, end: 20100924

REACTIONS (22)
  - ACNE [None]
  - ALANINE AMINOTRANSFERASE INCREASED [None]
  - ANAPHYLACTIC SHOCK [None]
  - BLOOD AMYLASE DECREASED [None]
  - BLOOD CREATININE INCREASED [None]
  - BLOOD GLUCOSE INCREASED [None]
  - BLOOD LACTATE DEHYDROGENASE INCREASED [None]
  - BLOOD PRESSURE DIASTOLIC DECREASED [None]
  - BLOOD PRESSURE SYSTOLIC INCREASED [None]
  - DYSPNOEA [None]
  - FEELING COLD [None]
  - GENERALISED ERYTHEMA [None]
  - GLOMERULAR FILTRATION RATE INCREASED [None]
  - HYPOAESTHESIA [None]
  - MALAISE [None]
  - MUSCULOSKELETAL STIFFNESS [None]
  - PROTEIN TOTAL DECREASED [None]
  - PYREXIA [None]
  - RESPIRATORY FAILURE [None]
  - STREPTOCOCCUS TEST POSITIVE [None]
  - TETANY [None]
  - URTICARIA [None]
